FAERS Safety Report 5660213-8 (Version None)
Quarter: 2008Q1

REPORT INFORMATION
  Report Type: 
  Country: None (occurrence: None)
  Receive Date: 20080212
  Receipt Date: 20080107
  Transmission Date: 20080703
  Serious: Yes (Other)
  Sender: FDA-Public Use
  Company Number: MC200700730

PATIENT
  Age: 61 Year
  Sex: Male
  Weight: 90.7 kg

DRUGS (6)
  1. ANGIOMAX [Suspect]
     Indication: PERCUTANEOUS CORONARY INTERVENTION
     Dosage: 0.75 MG/KG (13.5 ML), SINGLE, IV BOLUS; 1.75 MG/KG (31.5 ML), HR, INTRAVENOUS
     Route: 040
     Dates: start: 20071123, end: 20071123
  2. ANGIOMAX [Suspect]
     Indication: PERCUTANEOUS CORONARY INTERVENTION
     Dosage: 0.75 MG/KG (13.5 ML), SINGLE, IV BOLUS; 1.75 MG/KG (31.5 ML), HR, INTRAVENOUS
     Route: 040
     Dates: start: 20071123, end: 20071123
  3. ATROPINE [Concomitant]
  4. FENTANYL [Concomitant]
  5. VERSED [Concomitant]
  6. NTG (GLYCERYL TRINITRATE) [Concomitant]

REACTIONS (2)
  - CHEST PAIN [None]
  - THROMBOSIS [None]
